FAERS Safety Report 6850567-9 (Version None)
Quarter: 2010Q3

REPORT INFORMATION
  Report Type: 
  Country: None (occurrence: None)
  Receive Date: 20100716
  Receipt Date: 20080109
  Transmission Date: 20110219
  Serious: No
  Sender: FDA-Public Use
  Company Number: US-PFIZER INC-2007087778

PATIENT
  Sex: Male
  Weight: 86.4 kg

DRUGS (17)
  1. CHANTIX [Suspect]
     Indication: SMOKING CESSATION THERAPY
     Dates: start: 20071009
  2. METFORMIN HCL [Suspect]
     Indication: DIABETES MELLITUS
  3. CARDIZEM [Concomitant]
  4. LIPITOR [Concomitant]
     Indication: BLOOD CHOLESTEROL INCREASED
  5. ACETYLSALICYLIC ACID [Concomitant]
  6. DIABETA [Concomitant]
  7. PLAVIX [Concomitant]
  8. ATENOLOL [Concomitant]
  9. VASOTEC [Concomitant]
     Indication: HYPERTENSION
  10. GLYBURIDE [Concomitant]
  11. DIPYRIDAMOLE [Concomitant]
  12. LORCET-HD [Concomitant]
  13. XANAX [Concomitant]
  14. TESTOSTERONE [Concomitant]
     Dosage: MONTHLY
  15. LASIX [Concomitant]
  16. POTASSIUM CHLORIDE [Concomitant]
  17. VITAMINS [Concomitant]

REACTIONS (1)
  - NAUSEA [None]
